FAERS Safety Report 9861800 (Version 2)
Quarter: 2014Q1

REPORT INFORMATION
  Report Type: Spontaneous
  Country: IT (occurrence: IT)
  Receive Date: 20140203
  Receipt Date: 20140203
  Transmission Date: 20141002
  Serious: Yes (Other)
  Sender: FDA-Public Use
  Company Number: IT-RANBAXY-2014RR-77263

PATIENT
  Age: 36 Year
  Sex: Female

DRUGS (1)
  1. AMOXICILLIN/CLAVULANIC ACID [Suspect]
     Indication: ACUTE TONSILLITIS
     Dosage: 1 DOSAGE UNIT
     Route: 048
     Dates: start: 20131212, end: 20131212

REACTIONS (1)
  - Erythema [Recovering/Resolving]
